FAERS Safety Report 9423602 (Version 1)
Quarter: 2013Q3

REPORT INFORMATION
  Report Type: Spontaneous
  Country: FR (occurrence: FR)
  Receive Date: 20130726
  Receipt Date: 20130726
  Transmission Date: 20140515
  Serious: Yes (Death)
  Sender: FDA-Public Use
  Company Number: FR-ASTRAZENECA-2013SE56555

PATIENT
  Age: 30482 Day
  Sex: Female

DRUGS (13)
  1. INEXIUM [Suspect]
     Route: 042
     Dates: start: 20130515
  2. BRICANYL [Suspect]
     Route: 055
     Dates: start: 20130515
  3. PERFALGAN [Suspect]
     Route: 042
     Dates: start: 20130519
  4. TARGOCID [Suspect]
     Route: 042
     Dates: start: 20130524
  5. TARGOCID [Suspect]
     Dosage: REDUCED DOSE
     Route: 042
  6. LASILIX [Suspect]
     Route: 048
     Dates: start: 20130516
  7. HEPARIN SODIUM [Suspect]
     Route: 042
     Dates: start: 20130515
  8. HEPARIN SODIUM [Suspect]
     Dosage: INCREASED DOSE
     Route: 042
  9. METHYLPREDNISOLONE MYLAN [Suspect]
     Route: 042
     Dates: start: 20130516
  10. METHYLPREDNISOLONE MYLAN [Suspect]
     Dosage: REDUCED DOSE
     Route: 042
  11. INSULINE [Suspect]
     Route: 058
  12. LEVOTHYROX [Suspect]
     Route: 048
  13. OXYGEN THERAPY [Concomitant]

REACTIONS (4)
  - Thrombocytopenia [Fatal]
  - Staphylococcal sepsis [Fatal]
  - Septic shock [Fatal]
  - Multi-organ failure [Fatal]
